FAERS Safety Report 5644435-8 (Version None)
Quarter: 2008Q1

REPORT INFORMATION
  Report Type: 
  Country: None (occurrence: None)
  Receive Date: 20080229
  Receipt Date: 20080227
  Transmission Date: 20080703
  Serious: Yes (Death, Hospitalization)
  Sender: FDA-Public Use
  Company Number: BE-BRISTOL-MYERS SQUIBB COMPANY-13865159

PATIENT
  Age: 61 Year
  Sex: Male

DRUGS (22)
  1. CARBOPLATIN [Suspect]
     Indication: SMALL CELL LUNG CANCER STAGE UNSPECIFIED
     Route: 042
     Dates: start: 20070712, end: 20070712
  2. ALIMTA [Suspect]
     Indication: SMALL CELL LUNG CANCER STAGE UNSPECIFIED
     Route: 042
     Dates: start: 20070712
  3. FOLAVIT [Concomitant]
     Route: 048
     Dates: start: 20070502
  4. VITAMIN B-12 [Concomitant]
     Route: 030
     Dates: start: 20070502
  5. MEDROL [Concomitant]
     Route: 048
     Dates: start: 20070601
  6. LORAMET [Concomitant]
     Route: 048
     Dates: start: 20060101
  7. BISOPROLOL FUMARATE [Concomitant]
     Route: 048
     Dates: start: 20040501
  8. COVERSYL PLUS [Concomitant]
     Route: 048
     Dates: start: 20040501
  9. OMEPRAZOLE [Concomitant]
     Dates: start: 20070501
  10. AMLOR [Concomitant]
     Route: 048
     Dates: start: 20040501
  11. SERETIDE [Concomitant]
     Dosage: 1 PUFF
     Dates: start: 20070401
  12. SPIRIVA [Concomitant]
     Dates: start: 20070401
  13. HYDROMORPHONE HCL [Concomitant]
     Dates: start: 20070501
  14. PLAVIX [Concomitant]
     Dates: start: 20040101
  15. DEXAMETHASONE TAB [Concomitant]
     Dates: start: 20070309, end: 20070713
  16. DURAGESIC-100 [Concomitant]
     Indication: PAIN
     Dates: start: 20070516
  17. LITICAN [Concomitant]
     Indication: NAUSEA
     Dates: start: 20070621, end: 20070722
  18. LYSOMUCIL [Concomitant]
     Indication: COUGH
     Dates: start: 20070510, end: 20070720
  19. MS DIRECT [Concomitant]
     Indication: PAIN
     Dates: start: 20070516, end: 20070820
  20. PROVERA [Concomitant]
     Dates: start: 20070621, end: 20070720
  21. ULTRA-MG [Concomitant]
     Indication: PROPHYLAXIS
     Dates: start: 20070713, end: 20070722
  22. MEDROL [Concomitant]
     Indication: PROPHYLAXIS
     Dates: start: 20070711, end: 20070715

REACTIONS (4)
  - COLITIS [None]
  - DISEASE PROGRESSION [None]
  - MALIGNANT NEOPLASM PROGRESSION [None]
  - NON-SMALL CELL LUNG CANCER [None]
